FAERS Safety Report 5757453-6 (Version None)
Quarter: 2008Q2

REPORT INFORMATION
  Report Type: 
  Country: None (occurrence: None)
  Receive Date: 20080603
  Receipt Date: 20080527
  Transmission Date: 20081010
  Serious: No
  Sender: FDA-Public Use
  Company Number: US-BOEHRINGER INGELHEIM GMBH, GERMANY-2008-BP-08139BP

PATIENT
  Age: 83 Year
  Sex: Female

DRUGS (5)
  1. ZANTAC 150 [Suspect]
     Indication: ABDOMINAL PAIN
     Route: 048
     Dates: start: 20080501
  2. VYTORIN [Concomitant]
     Indication: BLOOD CHOLESTEROL INCREASED
  3. LEXAPRO [Concomitant]
     Indication: DEPRESSION
  4. KLONOPIN [Concomitant]
     Indication: DEPRESSION
  5. FISH OIL [Concomitant]

REACTIONS (2)
  - CONSTIPATION [None]
  - FAECES DISCOLOURED [None]
